FAERS Safety Report 16384211 (Version 4)
Quarter: 2019Q3

REPORT INFORMATION
  Report Type: Spontaneous
  Country: FR (occurrence: FR)
  Receive Date: 20190603
  Receipt Date: 20190903
  Transmission Date: 20191004
  Serious: Yes (Hospitalization, Congenital Anomaly, Other)
  Sender: FDA-Public Use
  Company Number: FR-MYLANLABS-2019M1051963

PATIENT
  Sex: Male
  Weight: 2.47 kg

DRUGS (8)
  1. DEPAKINE CHRONO [Suspect]
     Active Substance: VALPROATE SODIUM
     Dosage: UNK UNK, UNK
     Route: 064
  2. ZINC. [Concomitant]
     Active Substance: ZINC
     Dosage: 30 MILLIGRAM, QD
     Route: 064
     Dates: start: 200702
  3. VALPROIC ACID. [Suspect]
     Active Substance: VALPROIC ACID
     Indication: PRODUCT USED FOR UNKNOWN INDICATION
     Dosage: UNK
     Route: 064
  4. DEPAKINE CHRONO [Suspect]
     Active Substance: VALPROATE SODIUM
     Dosage: 1000 MILLIGRAM, QD
     Route: 064
     Dates: start: 20060906, end: 20070925
  5. SELENIUM [Concomitant]
     Active Substance: SELENIUM
     Dosage: 2 MILLIGRAM, QD
     Route: 064
     Dates: start: 200702
  6. DEPAKINE CHRONO [Suspect]
     Active Substance: VALPROATE SODIUM
     Indication: EPILEPSY
     Dosage: QD
     Route: 064
     Dates: start: 20060905, end: 20070605
  7. VITAMIN K1 [Concomitant]
     Active Substance: PHYTONADIONE
     Dosage: 10 MILLIGRAM, QD
     Route: 064
  8. FOLIC ACID. [Concomitant]
     Active Substance: FOLIC ACID
     Indication: PROPHYLAXIS
     Dosage: 5 MILLIGRAM, QD
     Route: 064
     Dates: start: 200702

REACTIONS (28)
  - Strabismus [Not Recovered/Not Resolved]
  - Upper respiratory tract infection [Unknown]
  - Cognitive disorder [Unknown]
  - Emotional disorder [Unknown]
  - Learning disorder [Unknown]
  - Astigmatism [Not Recovered/Not Resolved]
  - Foetal heart rate disorder [Recovered/Resolved]
  - Attention deficit/hyperactivity disorder [Unknown]
  - Deafness [Unknown]
  - Dysmorphism [Unknown]
  - Psychomotor skills impaired [Not Recovered/Not Resolved]
  - Fine motor delay [Not Recovered/Not Resolved]
  - Behaviour disorder [Unknown]
  - Foetal malnutrition [Recovered/Resolved]
  - Developmental delay [Unknown]
  - Obesity [Not Recovered/Not Resolved]
  - Rash [Unknown]
  - Foetal exposure during pregnancy [Recovered/Resolved]
  - Language disorder [Not Recovered/Not Resolved]
  - Jaundice neonatal [Recovered/Resolved]
  - Limb malformation [Not Recovered/Not Resolved]
  - Eczema [Unknown]
  - Fatigue [Not Recovered/Not Resolved]
  - Syndactyly [Unknown]
  - Psychomotor retardation [Not Recovered/Not Resolved]
  - Fine motor skill dysfunction [Unknown]
  - Speech disorder developmental [Not Recovered/Not Resolved]
  - Pyelonephritis [Recovered/Resolved]

NARRATIVE: CASE EVENT DATE: 20060906
